FAERS Safety Report 7002122-8 (Version None)
Quarter: 2010Q3

REPORT INFORMATION
  Report Type: 
  Country: None (occurrence: None)
  Receive Date: 20100920
  Receipt Date: 20100301
  Transmission Date: 20110219
  Serious: Yes (Hospitalization)
  Sender: FDA-Public Use
  Company Number: US-ASTRAZENECA-2006UW06293

PATIENT
  Age: 27 Year
  Sex: Male
  Weight: 158.8 kg

DRUGS (19)
  1. SEROQUEL [Suspect]
     Indication: SCHIZOPHRENIA
     Route: 048
     Dates: start: 20030101
  2. SEROQUEL [Suspect]
     Dosage: 25MG-200MG
     Route: 048
     Dates: start: 20070305
  3. ZYPREXA [Suspect]
     Indication: SCHIZOPHRENIA
     Route: 048
     Dates: start: 20000101, end: 20030101
  4. RISPERDAL [Suspect]
     Indication: ANXIETY
     Route: 048
     Dates: start: 20000101
  5. RISPERDAL [Suspect]
     Indication: SCHIZOPHRENIA
     Route: 048
     Dates: start: 20000101
  6. RISPERDAL [Suspect]
     Dates: start: 20040101, end: 20060101
  7. RISPERDAL [Suspect]
     Dates: start: 20040101, end: 20060101
  8. RISPERDAL [Suspect]
     Dosage: 1MG-3MG
     Dates: start: 20040707
  9. RISPERDAL [Suspect]
     Dosage: 1MG-3MG
     Dates: start: 20040707
  10. DEPAKOTE [Concomitant]
     Dosage: 500MG-2500MG
     Route: 048
     Dates: start: 20031101
  11. HALDOL [Concomitant]
     Indication: PSYCHOTIC DISORDER
     Dosage: 2MG-10MG
     Dates: start: 19950314
  12. HALDOL [Concomitant]
     Indication: HALLUCINATION, AUDITORY
     Dosage: 2MG-10MG
     Dates: start: 19950314
  13. COGENTIN [Concomitant]
     Dosage: 0.5MG-2MG
     Dates: start: 20040920
  14. PAXIL [Concomitant]
     Dates: start: 20070305
  15. ABILIFY [Concomitant]
     Dosage: 10MG-30MG
     Dates: start: 20040712
  16. ZOCOR [Concomitant]
     Dates: start: 20070305
  17. ATIVAN [Concomitant]
     Indication: SLEEP DISORDER
     Dosage: 0.5MG-2MG
  18. CELEXA [Concomitant]
     Dates: start: 20060430
  19. ZOLOFT [Concomitant]

REACTIONS (4)
  - DIABETES MELLITUS [None]
  - DIABETIC KETOACIDOSIS [None]
  - TYPE 1 DIABETES MELLITUS [None]
  - TYPE 2 DIABETES MELLITUS [None]
